FAERS Safety Report 24712682 (Version 3)
Quarter: 2025Q3

REPORT INFORMATION
  Report Type: Spontaneous
  Country: US (occurrence: US)
  Receive Date: 20241209
  Receipt Date: 20250803
  Transmission Date: 20251021
  Serious: Yes (Other)
  Sender: ALEXION PHARMACEUTICALS
  Company Number: US-AstraZeneca-CH-00751702A

PATIENT
  Age: 44 Year
  Sex: Female

DRUGS (1)
  1. TEZSPIRE [Suspect]
     Active Substance: TEZEPELUMAB-EKKO
     Dosage: 210 MILLIGRAM, Q4W
     Route: 065

REACTIONS (7)
  - Loss of consciousness [Unknown]
  - Accidental exposure to product [Unknown]
  - Crying [Unknown]
  - Screaming [Unknown]
  - Device malfunction [Unknown]
  - Illness [Unknown]
  - Injection site pain [Unknown]

NARRATIVE: CASE EVENT DATE: 20241103
